FAERS Safety Report 15238741 (Version 2)
Quarter: 2019Q2

REPORT INFORMATION
  Report Type: Spontaneous
  Country: ES (occurrence: ES)
  Receive Date: 20180803
  Receipt Date: 20190503
  Transmission Date: 20190711
  Serious: Yes (Other)
  Sender: FDA-Public Use
  Company Number: ES-MYLANLABS-2018M1056953

PATIENT
  Age: 62 Year

DRUGS (5)
  1. METHOTREXATE. [Concomitant]
     Active Substance: METHOTREXATE
     Indication: PROPHYLAXIS AGAINST GRAFT VERSUS HOST DISEASE
     Dosage: UNK
     Route: 065
  2. TACROLIMUS. [Suspect]
     Active Substance: TACROLIMUS
     Indication: PROPHYLAXIS AGAINST GRAFT VERSUS HOST DISEASE
     Dosage: 0.6 MG, QD (LEVEL/DOSE: 12.5 MG/MLXMG)
     Route: 042
  3. AMBISOME [Interacting]
     Active Substance: AMPHOTERICIN B
     Indication: SYSTEMIC MYCOSIS
     Dosage: UNK
     Route: 065
  4. TACROLIMUS. [Interacting]
     Active Substance: TACROLIMUS
     Dosage: 1.3 MG, QD (0.02 MG/KG)
     Route: 042
  5. TACROLIMUS. [Interacting]
     Active Substance: TACROLIMUS
     Dosage: UNK (LEVEL/DOSE: 29.10 MG/MLXMG)
     Route: 042

REACTIONS (8)
  - Hyperphosphataemia [Unknown]
  - Renal impairment [Unknown]
  - Condition aggravated [Unknown]
  - Off label use [Unknown]
  - Immunosuppressant drug level increased [Unknown]
  - Systemic mycosis [Unknown]
  - Labelled drug-drug interaction medication error [Unknown]
  - Toxic skin eruption [Unknown]
